FAERS Safety Report 5318208-X (Version None)
Quarter: 2007Q2

REPORT INFORMATION
  Report Type: 
  Country: None (occurrence: None)
  Receive Date: 20070507
  Receipt Date: 20070425
  Transmission Date: 20071010
  Serious: Yes (Other)
  Sender: FDA-Public Use
  Company Number: US-PFIZER INC-2007023012

PATIENT
  Sex: Male
  Weight: 83.5 kg

DRUGS (10)
  1. CHANTIX [Suspect]
     Indication: SMOKING CESSATION THERAPY
     Dosage: DAILY DOSE:.5MG
     Route: 048
     Dates: start: 20070214, end: 20070313
  2. METHADONE HCL [Concomitant]
  3. FLEXERIL [Concomitant]
  4. XANAX [Concomitant]
  5. LUNESTA [Concomitant]
  6. ZOLOFT [Concomitant]
  7. NEURONTIN [Concomitant]
  8. LOPID [Concomitant]
  9. ZOCOR [Concomitant]
  10. OMEPRAZOLE [Concomitant]

REACTIONS (7)
  - ANXIETY [None]
  - DEPRESSION [None]
  - DISORIENTATION [None]
  - DYSPHEMIA [None]
  - FATIGUE [None]
  - RESTLESSNESS [None]
  - THINKING ABNORMAL [None]
